FAERS Safety Report 11556647 (Version 3)
Quarter: 2015Q4

REPORT INFORMATION
  Report Type: Report from Study
  Country: DK (occurrence: DK)
  Receive Date: 20150925
  Receipt Date: 20151209
  Transmission Date: 20160304
  Serious: Yes (Hospitalization, Other)
  Sender: FDA-Public Use
  Company Number: DK-GILEAD-2015-0173519

PATIENT
  Sex: Male
  Weight: 70.5 kg

DRUGS (8)
  1. TRADOLAN [Concomitant]
     Active Substance: TRAMADOL
     Dosage: 50 MG, UNK
     Dates: start: 20120314, end: 20150921
  2. IDELALISIB [Suspect]
     Active Substance: IDELALISIB
     Indication: CHRONIC LYMPHOCYTIC LEUKAEMIA
     Dosage: 150 MG, BID
     Route: 048
     Dates: start: 20130814
  3. EMPERAL [Concomitant]
     Active Substance: METOCLOPRAMIDE HYDROCHLORIDE
     Dosage: 10 MG, UNK
     Dates: start: 20140702, end: 20150921
  4. OFATUMUMAB [Suspect]
     Active Substance: OFATUMUMAB
     Indication: CHRONIC LYMPHOCYTIC LEUKAEMIA
     Dosage: 1000 MG, UNK
     Route: 042
     Dates: start: 20130814, end: 20140128
  5. SULFAMETOXAZOL MED TRIMETOPRIM [Concomitant]
     Dosage: UNK
     Dates: start: 20140716, end: 20150921
  6. PRIVIGEN [Concomitant]
     Active Substance: HUMAN IMMUNOGLOBULIN G
     Dosage: 100 G, UNK
     Dates: start: 20120410, end: 20150921
  7. PINEX                              /00020001/ [Concomitant]
     Active Substance: ACETAMINOPHEN
     Dosage: 500 MG, UNK
     Dates: start: 20150511, end: 20150921
  8. ZYMELIN [Concomitant]
     Active Substance: XYLOMETAZOLINE HYDROCHLORIDE
     Dosage: 1 G, UNK
     Dates: start: 20150510, end: 20150921

REACTIONS (3)
  - Bacterial diarrhoea [Recovered/Resolved]
  - Salmonella test positive [None]
  - Tenosynovitis [Recovered/Resolved]

NARRATIVE: CASE EVENT DATE: 20150911
